FAERS Safety Report 9233813 (Version 1)
Quarter: 2013Q2

REPORT INFORMATION
  Report Type: Spontaneous
  Country: US (occurrence: US)
  Receive Date: 20130416
  Receipt Date: 20130416
  Transmission Date: 20140414
  Serious: Yes (Other)
  Sender: FDA-Public Use
  Company Number: US-BAYER-2013-047299

PATIENT
  Age: 45 Year
  Sex: Female

DRUGS (2)
  1. OCELLA [Suspect]
  2. ZARAH [Suspect]

REACTIONS (1)
  - Deep vein thrombosis [Recovered/Resolved]
